FAERS Safety Report 8589738-2 (Version None)
Quarter: 2012Q3

REPORT INFORMATION
  Report Type: 
  Country: None (occurrence: None)
  Receive Date: 20120813
  Receipt Date: 20120807
  Transmission Date: 20120928
  Serious: Yes (Hospitalization)
  Sender: FDA-Public Use
  Company Number: DE-ROCHE-1086462

PATIENT
  Age: 58 Year
  Sex: Female
  Weight: 55 kg

DRUGS (4)
  1. PACLITAXEL [Suspect]
     Indication: OVARIAN CANCER
     Dosage: LAST DOSE PRIOR TO SAE : 01/AUG/2012
     Route: 042
     Dates: start: 20120430
  2. CIPROFLOXACIN [Concomitant]
  3. AVASTIN [Suspect]
     Indication: OVARIAN CANCER
     Dosage: LAST DOSE PRIOR TO SAE : 01/AUG/2012
     Route: 042
     Dates: start: 20120522
  4. CARBOPLATIN [Suspect]
     Indication: OVARIAN CANCER
     Dosage: LAST DOSE PRIOR TO SAE : 01/AUG/2012
     Route: 042
     Dates: start: 20120430

REACTIONS (1)
  - GENERAL PHYSICAL HEALTH DETERIORATION [None]
